FAERS Safety Report 8151556-7 (Version None)
Quarter: 2012Q1

REPORT INFORMATION
  Report Type: 
  Country: None (occurrence: None)
  Receive Date: 20120220
  Receipt Date: 20120213
  Transmission Date: 20120608
  Serious: Yes (Other)
  Sender: FDA-Public Use
  Company Number: US-ASTRAZENECA-2012SE09972

PATIENT
  Age: 73 Year
  Sex: Female

DRUGS (1)
  1. SEROQUEL XR [Suspect]
     Route: 048

REACTIONS (4)
  - ROAD TRAFFIC ACCIDENT [None]
  - HEARING IMPAIRED [None]
  - VISUAL ACUITY REDUCED [None]
  - CATARACT [None]
